FAERS Safety Report 12461816 (Version 2)
Quarter: 2016Q3

REPORT INFORMATION
  Report Type: Spontaneous
  Country: IT (occurrence: IT)
  Receive Date: 20160613
  Receipt Date: 20160705
  Transmission Date: 20161109
  Serious: Yes (Death, Life-Threatening)
  Sender: FDA-Public Use
  Company Number: US-SA-2016SA110177

PATIENT
  Age: 64 Year
  Sex: Male
  Weight: 92 kg

DRUGS (9)
  1. UNIPRIL [Concomitant]
     Active Substance: RAMIPRIL
     Route: 065
     Dates: start: 2006
  2. PANTOPRAZOLE [Concomitant]
     Active Substance: PANTOPRAZOLE SODIUM
     Route: 065
     Dates: start: 20160413
  3. DELTACORTENE [Concomitant]
     Active Substance: PREDNISONE
     Route: 065
     Dates: start: 20160413
  4. TAXOTERE [Suspect]
     Active Substance: DOCETAXEL
     Indication: BLADDER CANCER
     Route: 042
     Dates: start: 20160520, end: 20160522
  5. OXYCONTIN [Concomitant]
     Active Substance: OXYCODONE HYDROCHLORIDE
     Route: 065
     Dates: start: 20160413
  6. UNIPRILDIUR [Concomitant]
     Route: 065
     Dates: start: 2006
  7. ATORVASTATIN CALCIUM. [Concomitant]
     Active Substance: ATORVASTATIN CALCIUM
     Route: 065
     Dates: start: 2006
  8. METOPROLOL. [Concomitant]
     Active Substance: METOPROLOL
     Route: 065
     Dates: start: 2006
  9. CARDIOASPIRINA [Concomitant]
     Active Substance: ASPIRIN
     Route: 065
     Dates: start: 2006

REACTIONS (1)
  - Cardiac arrest [Fatal]

NARRATIVE: CASE EVENT DATE: 20160522
